FAERS Safety Report 10733020 (Version 1)
Quarter: 2015Q1

REPORT INFORMATION
  Report Type: Spontaneous
  Country: US (occurrence: US)
  Receive Date: 20150123
  Receipt Date: 20150123
  Transmission Date: 20150721
  Serious: No
  Sender: FDA-Public Use
  Company Number: US-TARO-2014P1000437

PATIENT
  Sex: Female

DRUGS (1)
  1. TOPICORT [Suspect]
     Active Substance: DESOXIMETASONE
     Route: 061

REACTIONS (1)
  - Application site discolouration [Not Recovered/Not Resolved]
